FAERS Safety Report 8510621-2 (Version None)
Quarter: 2012Q3

REPORT INFORMATION
  Report Type: 
  Country: None (occurrence: None)
  Receive Date: 20120716
  Receipt Date: 20120705
  Transmission Date: 20120928
  Serious: No
  Sender: FDA-Public Use
  Company Number: US-BIOGENIDEC-2012BI024153

PATIENT
  Age: 79 Year
  Sex: Female

DRUGS (1)
  1. AVONEX [Suspect]
     Indication: MULTIPLE SCLEROSIS
     Route: 030
     Dates: start: 20010211

REACTIONS (6)
  - LOSS OF CONTROL OF LEGS [None]
  - DIZZINESS [None]
  - NAUSEA [None]
  - PYREXIA [None]
  - DEAFNESS UNILATERAL [None]
  - MALAISE [None]
